FAERS Safety Report 20724857 (Version 1)
Quarter: 2022Q2

REPORT INFORMATION
  Report Type: Spontaneous
  Country: US (occurrence: None)
  Receive Date: 20220418
  Receipt Date: 20220418
  Transmission Date: 20220720
  Serious: Yes (Disabling, Other)
  Sender: FDA-Public Use
  Company Number: None

PATIENT
  Age: 65 Year

DRUGS (1)
  1. DEXTROAMPHET SACCHARAT, AMPHET ASPARTATE, DEXTROAMPHET SULFATE AND AMP [Suspect]
     Active Substance: AMPHETAMINE ASPARTATE\AMPHETAMINE SULFATE\DEXTROAMPHETAMINE SACCHARATE\DEXTROAMPHETAMINE SULFATE
     Indication: Narcolepsy
     Route: 048
     Dates: start: 20220408, end: 20220418

REACTIONS (9)
  - Product substitution issue [None]
  - Depression [None]
  - Fatigue [None]
  - Heart rate increased [None]
  - Asthenia [None]
  - Chest pain [None]
  - Somnolence [None]
  - Loss of personal independence in daily activities [None]
  - Product quality issue [None]

NARRATIVE: CASE EVENT DATE: 20220418
